FAERS Safety Report 17237996 (Version 1)
Quarter: 2020Q1

REPORT INFORMATION
  Report Type: Spontaneous
  Country: US (occurrence: US)
  Receive Date: 20200106
  Receipt Date: 20200106
  Transmission Date: 20200409
  Serious: No
  Sender: FDA-Public Use
  Company Number: US-PACIRA-201900060

PATIENT
  Age: 70 Year
  Sex: Female
  Weight: 61 kg

DRUGS (6)
  1. KETAMINE [Concomitant]
     Active Substance: KETAMINE
     Indication: GENERAL ANAESTHESIA
     Dosage: 30 MG, SINGLE, FREQUENCY : SINGLE
     Route: 065
  2. BUPIVACAINE. [Suspect]
     Active Substance: BUPIVACAINE
     Indication: NERVE BLOCK
     Dosage: 20 ML OF PLAIN BUPIVACAINE 0.25%, FREQUENCY : SINGLE
  3. SEVOFLURANE. [Concomitant]
     Active Substance: SEVOFLURANE
     Indication: GENERAL ANAESTHESIA
     Dosage: UNK, FREQUENCY : UNK
     Route: 065
  4. EXPAREL [Suspect]
     Active Substance: BUPIVACAINE
     Indication: NERVE BLOCK
     Dosage: 266 MG, SINGLE (20 ML), FREQUENCY : SINGLE
  5. FENTANYL. [Concomitant]
     Active Substance: FENTANYL
     Indication: GENERAL ANAESTHESIA
     Dosage: 300 ?G, SINGLE, FREQUENCY : SINGLE
     Route: 065
  6. DEXAMETHASONE. [Concomitant]
     Active Substance: DEXAMETHASONE
     Indication: GENERAL ANAESTHESIA
     Dosage: 10 MG OF DEXAMETHASONE OVER THE COURSE OF THE 8-HOUR OPERATION, FREQUENCY : UNK
     Route: 065

REACTIONS (2)
  - Off label use [Unknown]
  - Discomfort [Recovered/Resolved]
